FAERS Safety Report 6164874-9 (Version None)
Quarter: 2009Q2

REPORT INFORMATION
  Report Type: 
  Country: None (occurrence: None)
  Receive Date: 20090423
  Receipt Date: 20090415
  Transmission Date: 20091009
  Serious: Yes (Hospitalization)
  Sender: FDA-Public Use
  Company Number: US-ASTRAZENECA-2009UW09452

PATIENT
  Age: 61 Year
  Sex: Male
  Weight: 97.1 kg

DRUGS (3)
  1. NEXIUM [Suspect]
     Indication: PROPHYLAXIS AGAINST GASTROINTESTINAL ULCER
     Route: 048
     Dates: start: 20080912, end: 20090321
  2. CELECOXIB IBUPROFEN NAPROXEN CODE NOT BROKEN [Suspect]
     Indication: OSTEOARTHRITIS
     Dosage: HIGH DOSE
     Route: 048
     Dates: start: 20080912
  3. ASPIRIN [Concomitant]
     Route: 048
     Dates: start: 20070201

REACTIONS (1)
  - POLYARTHRITIS [None]
